FAERS Safety Report 5329339-2 (Version None)
Quarter: 2007Q2

REPORT INFORMATION
  Report Type: 
  Country: None (occurrence: None)
  Receive Date: 20070518
  Receipt Date: 20070507
  Transmission Date: 20071010
  Serious: Yes (Other)
  Sender: FDA-Public Use
  Company Number: US-PFIZER INC-2007038287

PATIENT
  Sex: Female
  Weight: 57.2 kg

DRUGS (10)
  1. LYRICA [Suspect]
     Indication: PAIN
  2. PREDNISOLONE [Concomitant]
  3. LEXAPRO [Concomitant]
  4. ZOCOR [Concomitant]
  5. PROCARDIA XL [Concomitant]
  6. INSULIN [Concomitant]
  7. GLUCOPHAGE [Concomitant]
  8. STARLIX [Concomitant]
  9. CATAPRES [Concomitant]
  10. ARICEPT [Concomitant]

REACTIONS (4)
  - CONFUSIONAL STATE [None]
  - DIZZINESS [None]
  - FATIGUE [None]
  - TEMPORAL ARTERITIS [None]
